FAERS Safety Report 8958569 (Version 1)
Quarter: 2012Q4

REPORT INFORMATION
  Report Type: Spontaneous
  Country: US (occurrence: None)
  Receive Date: 20121207
  Receipt Date: 20121207
  Transmission Date: 20130627
  Serious: No
  Sender: FDA-Public Use
  Company Number: None

PATIENT
  Sex: Male
  Weight: 60 kg

DRUGS (2)
  1. PLAVIX [Suspect]
     Indication: ANGIOPLASTY
     Dosage: once a day
  2. PLAVIX [Suspect]
     Indication: OLD MYOCARDIAL INFARCTION
     Dosage: once a day

REACTIONS (5)
  - Drug intolerance [None]
  - Confusional state [None]
  - Vision blurred [None]
  - Headache [None]
  - Dizziness [None]
